FAERS Safety Report 4917283-1 (Version None)
Quarter: 2006Q1

REPORT INFORMATION
  Report Type: 
  Country: None (occurrence: None)
  Receive Date: 20060221
  Receipt Date: 20060210
  Transmission Date: 20060701
  Serious: Yes (Hospitalization)
  Sender: FDA-Public Use
  Company Number: FR-AVENTIS-200610558FR

PATIENT
  Sex: Female

DRUGS (2)
  1. KETEK [Suspect]
  2. UNKNOWN DRUG [Concomitant]

REACTIONS (5)
  - CHEILITIS [None]
  - DRUG RASH WITH EOSINOPHILIA AND SYSTEMIC SYMPTOMS [None]
  - FACE OEDEMA [None]
  - HEPATITIS CHOLESTATIC [None]
  - URTICARIA [None]
